FAERS Safety Report 8546593-4 (Version None)
Quarter: 2012Q3

REPORT INFORMATION
  Report Type: 
  Country: None (occurrence: None)
  Receive Date: 20120727
  Receipt Date: 20111229
  Transmission Date: 20120928
  Serious: No
  Sender: FDA-Public Use
  Company Number: US-ASTRAZENECA-2011SE78970

PATIENT
  Sex: Male

DRUGS (9)
  1. WATER PILL [Concomitant]
  2. CAPTOPRIL [Concomitant]
  3. ATENOLOL [Concomitant]
  4. CELEXA [Concomitant]
  5. SEROQUEL [Suspect]
     Indication: DEPRESSION
     Route: 048
  6. SEROQUEL [Suspect]
     Indication: SCHIZOPHRENIA
     Route: 048
  7. SEROQUEL [Suspect]
     Indication: BIPOLAR DISORDER
     Route: 048
  8. SEROQUEL [Suspect]
     Indication: SLEEP DISORDER
     Route: 048
  9. BUSPAR [Concomitant]

REACTIONS (5)
  - HEADACHE [None]
  - MUSCLE SPASMS [None]
  - SOMNOLENCE [None]
  - ABDOMINAL PAIN UPPER [None]
  - OFF LABEL USE [None]
